FAERS Safety Report 12928613 (Version 1)
Quarter: 2016Q4

REPORT INFORMATION
  Report Type: Spontaneous
  Country: BR (occurrence: BR)
  Receive Date: 20161110
  Receipt Date: 20161110
  Transmission Date: 20170207
  Serious: Yes (Death)
  Sender: FDA-Public Use
  Company Number: BR-TORRENT-00003662

PATIENT
  Sex: Male

DRUGS (1)
  1. EPZ [Suspect]
     Active Substance: DONEPEZIL HYDROCHLORIDE
     Indication: PRODUCT USED FOR UNKNOWN INDICATION
     Dosage: EPZ (UNKNOWN PRESENTATION), DOSAGE UNKNOWN.
     Route: 065

REACTIONS (1)
  - Death [Fatal]
